FAERS Safety Report 6289626-0 (Version None)
Quarter: 2009Q3

REPORT INFORMATION
  Report Type: 
  Country: None (occurrence: None)
  Receive Date: 20090730
  Receipt Date: 19740301
  Transmission Date: 20100115
  Serious: No
  Sender: FDA-Public Use
  Company Number: 740020

PATIENT
  Age: 30 Year
  Sex: Female
  Weight: 112 kg

DRUGS (1)
  1. COUMADIN [Suspect]
     Indication: PULMONARY EMBOLISM
     Route: 048
     Dates: start: 19740201, end: 19740228

REACTIONS (3)
  - ALOPECIA [None]
  - DRUG EXPOSURE DURING PREGNANCY [None]
  - HYPERTENSION [None]
